FAERS Safety Report 7218110-2 (Version None)
Quarter: 2011Q1

REPORT INFORMATION
  Report Type: 
  Country: None (occurrence: None)
  Receive Date: 20110110
  Receipt Date: 20110106
  Transmission Date: 20110831
  Serious: Yes (Hospitalization)
  Sender: FDA-Public Use
  Company Number: FR-MERCK-1101FRA00022

PATIENT
  Age: 88 Year
  Sex: Female

DRUGS (7)
  1. BENSERAZIDE HYDROCHLORIDE AND LEVODOPA [Concomitant]
     Indication: PARKINSON'S DISEASE
     Route: 048
  2. ALPRAZOLAM [Concomitant]
     Route: 048
  3. CANDESARTAN CILEXETIL [Concomitant]
     Route: 048
  4. FOSAMAX [Suspect]
     Indication: OSTEOPOROSIS
     Route: 048
     Dates: start: 20070101, end: 20101001
  5. AMLODIPINE BESYLATE [Concomitant]
     Route: 048
  6. TIANEPTINE SODIUM [Concomitant]
     Indication: DEPRESSION
     Route: 048
  7. WARFARIN SODIUM [Concomitant]
     Indication: PHLEBITIS
     Route: 048

REACTIONS (3)
  - DECREASED APPETITE [None]
  - OESOPHAGITIS [None]
  - WEIGHT DECREASED [None]
